FAERS Safety Report 7427037-2 (Version None)
Quarter: 2011Q2

REPORT INFORMATION
  Report Type: 
  Country: None (occurrence: None)
  Receive Date: 20110420
  Receipt Date: 20110112
  Transmission Date: 20111010
  Serious: No
  Sender: FDA-Public Use
  Company Number: US-TEVA-262736USA

PATIENT
  Sex: Female
  Weight: 47.67 kg

DRUGS (2)
  1. PLAN B ONE-STEP [Suspect]
     Indication: POST COITAL CONTRACEPTION
     Dosage: 1.5 MILLIGRAM;
     Route: 048
     Dates: start: 20110102, end: 20110102
  2. SINGULAIR [Concomitant]
     Indication: MULTIPLE ALLERGIES

REACTIONS (3)
  - NAUSEA [None]
  - BREAST TENDERNESS [None]
  - VAGINAL DISCHARGE [None]
